FAERS Safety Report 6260129-2 (Version None)
Quarter: 2009Q3

REPORT INFORMATION
  Report Type: 
  Country: None (occurrence: None)
  Receive Date: 20090708
  Receipt Date: 20090629
  Transmission Date: 20100115
  Serious: Yes (Congenital Anomaly)
  Sender: FDA-Public Use
  Company Number: A0680379A

PATIENT
  Sex: Female
  Weight: 3.6 kg

DRUGS (16)
  1. PAXIL [Suspect]
     Indication: DEPRESSION
     Dosage: 20MG PER DAY
     Dates: start: 20030301, end: 20041101
  2. PAROXETINE HCL [Suspect]
     Indication: DEPRESSION
     Dosage: 20MG PER DAY
     Dates: start: 20030301, end: 20041101
  3. VITAMIN TAB [Concomitant]
  4. NOVOLIN [Concomitant]
     Dates: start: 19970101
  5. AMOXICILLIN [Concomitant]
  6. FAMOTIDINE [Concomitant]
  7. ROBITUSSIN [Concomitant]
  8. ANCEF [Concomitant]
     Dates: start: 20040901
  9. GLUCOPHAGE [Concomitant]
     Dates: end: 20040801
  10. KLONOPIN [Concomitant]
  11. MORPHINE [Concomitant]
     Dates: start: 20040213
  12. PHENERGAN [Concomitant]
     Dates: start: 20040213
  13. INSULIN [Concomitant]
  14. MACROBID [Concomitant]
  15. PHENAZOPYRIDINE HCL TAB [Concomitant]
  16. METFORMIN HCL [Concomitant]

REACTIONS (4)
  - CONGENITAL CYSTIC KIDNEY DISEASE [None]
  - DRUG EXPOSURE DURING PREGNANCY [None]
  - KIDNEY MALFORMATION [None]
  - RENAL DYSPLASIA [None]
